FAERS Safety Report 9419093 (Version 1)
Quarter: 2013Q3

REPORT INFORMATION
  Report Type: Spontaneous
  Country: US (occurrence: US)
  Receive Date: 20130725
  Receipt Date: 20130725
  Transmission Date: 20140515
  Serious: Yes (Other)
  Sender: FDA-Public Use
  Company Number: US-NAPPMUNDI-USA-2013-0104832

PATIENT
  Age: 66 Year
  Sex: Female
  Weight: 43.08 kg

DRUGS (4)
  1. OXYCODONE HYDROCHLORIDE (SIMILAR TO NDA 22-272) [Suspect]
     Indication: PRODUCT USED FOR UNKNOWN INDICATION
     Dosage: 30 MG, UNK
     Route: 048
  2. OXYCODONE HYDROCHLORIDE (SIMILAR TO NDA 22-272) [Suspect]
     Dosage: 15 MG, 2 TO 3 TIMES A DAY
     Route: 048
  3. SIMPONI [Suspect]
     Indication: RHEUMATOID ARTHRITIS
     Dosage: 50 MG, 1 IN 3 WEEK
     Route: 058
     Dates: start: 201204
  4. SIMPONI [Suspect]
     Indication: OSTEOARTHRITIS
     Dosage: 50 MG, 1 IN 3 WEEK
     Route: 058

REACTIONS (2)
  - Back injury [Unknown]
  - Bedridden [Unknown]
